FAERS Safety Report 18389371 (Version 1)
Quarter: 2020Q4

REPORT INFORMATION
  Report Type: Spontaneous
  Country: TR (occurrence: TR)
  Receive Date: 20201015
  Receipt Date: 20201015
  Transmission Date: 20210114
  Serious: Yes (Life-Threatening, Hospitalization)
  Sender: FDA-Public Use
  Company Number: TR-JNJFOC-20201014774

PATIENT
  Age: 82 Year
  Sex: Male
  Weight: 60 kg

DRUGS (11)
  1. PANADOL [Concomitant]
     Active Substance: ACETAMINOPHEN
     Indication: ARTHRALGIA
     Dosage: 500 UNSPECIFIED
     Route: 065
  2. DICLOMAC [Concomitant]
     Indication: ARTHRALGIA
     Dosage: 1 UNSPECIFIED
     Route: 065
  3. ARVELES [Concomitant]
     Active Substance: DEXKETOPROFEN
     Indication: BACK PAIN
     Dosage: 25 UNSPECIFIED
     Route: 065
  4. DESXPLUS [Concomitant]
     Indication: ARTHRALGIA
     Dosage: 25/8 MG UNSPECIFIED FREQUENCY
     Route: 065
  5. ABIRATERONE ACETATE. [Suspect]
     Active Substance: ABIRATERONE ACETATE
     Indication: PROSTATE CANCER
     Route: 048
     Dates: start: 20191224, end: 20200107
  6. XANAX [Concomitant]
     Active Substance: ALPRAZOLAM
     Indication: ARTHRALGIA
     Dosage: 0.5 UNSPECIFIED
     Route: 065
  7. CATAFLAM                           /00372302/ [Concomitant]
     Active Substance: DICLOFENAC SODIUM
     Indication: ARTHRALGIA
     Dosage: 50 UNSPECIFIED
     Route: 065
  8. NIRAPARIB [Suspect]
     Active Substance: NIRAPARIB
     Indication: PROSTATE CANCER
     Route: 048
     Dates: start: 20191224, end: 20200107
  9. TILCOTIL [Concomitant]
     Active Substance: TENOXICAM
     Indication: ARTHRALGIA
     Dosage: 20 UNSPECIFIED
     Route: 065
  10. PREDNISONE. [Suspect]
     Active Substance: PREDNISONE
     Indication: PROSTATE CANCER
     Dosage: MOST RECENT DOSE ADMINISTERED ON 28-JAN-2020
     Route: 048
     Dates: start: 20191224
  11. COVERSYL [Concomitant]
     Active Substance: PERINDOPRIL
     Indication: HYPERTENSION
     Dosage: 10 UNSPECIFIED
     Route: 065

REACTIONS (3)
  - Fatigue [Recovered/Resolved]
  - Dyspnoea [Recovered/Resolved]
  - Dysuria [Not Recovered/Not Resolved]

NARRATIVE: CASE EVENT DATE: 20191226
